FAERS Safety Report 10598083 (Version 1)
Quarter: 2014Q4

REPORT INFORMATION
  Report Type: Spontaneous
  Country: US (occurrence: None)
  Receive Date: 20141120
  Receipt Date: 20141120
  Transmission Date: 20150529
  Serious: Yes (Life-Threatening)
  Sender: FDA-Public Use
  Company Number: None

PATIENT
  Age: 21 Year
  Sex: Female
  Weight: 47.63 kg

DRUGS (1)
  1. MIRENA [Suspect]
     Active Substance: LEVONORGESTREL
     Indication: CONTRACEPTION

REACTIONS (5)
  - Psychotic disorder [None]
  - Depression [None]
  - Panic disorder [None]
  - Suicidal behaviour [None]
  - Anxiety [None]

NARRATIVE: CASE EVENT DATE: 20141118
